FAERS Safety Report 5771721-3 (Version None)
Quarter: 2008Q2

REPORT INFORMATION
  Report Type: 
  Country: None (occurrence: None)
  Receive Date: 20080601
  Receipt Date: 20080226
  Transmission Date: 20081010
  Serious: No
  Sender: FDA-Public Use
  Company Number: US200802006426

PATIENT
  Age: 70 Year
  Sex: Female
  Weight: 90.7 kg

DRUGS (7)
  1. BYETTA [Suspect]
     Indication: TYPE 2 DIABETES MELLITUS
     Dosage: 5 UG, 2/D, SUBCUTANEOUS
     Route: 058
     Dates: start: 20080214
  2. METFORMIN HCL [Concomitant]
  3. GLYBURIDE [Concomitant]
  4. HYZAAR [Concomitant]
  5. LOVASTATIN [Concomitant]
  6. ZETIA [Concomitant]
  7. MULTI-VIT (VITAMINS NOS) [Concomitant]

REACTIONS (5)
  - INJECTION SITE RASH [None]
  - PRURITUS GENERALISED [None]
  - RASH [None]
  - THROAT TIGHTNESS [None]
  - URTICARIA [None]
